FAERS Safety Report 22812945 (Version 3)
Quarter: 2023Q4

REPORT INFORMATION
  Report Type: Spontaneous
  Country: US (occurrence: US)
  Receive Date: 20230811
  Receipt Date: 20231024
  Transmission Date: 20240110
  Serious: No
  Sender: FDA-Public Use
  Company Number: US-SA-SAC20230809000939

PATIENT
  Age: 3 Year
  Sex: Female
  Weight: 14 kg

DRUGS (1)
  1. DUPIXENT [Suspect]
     Active Substance: DUPILUMAB
     Indication: Dermatitis atopic
     Dosage: 200 MG, Q4W
     Route: 058
     Dates: start: 20230803

REACTIONS (5)
  - Lacrimation increased [Recovered/Resolved]
  - Eye pruritus [Recovered/Resolved]
  - Eczema [Unknown]
  - Pruritus [Recovering/Resolving]
  - Rash [Recovering/Resolving]

NARRATIVE: CASE EVENT DATE: 20230801
